FAERS Safety Report 16304951 (Version 1)
Quarter: 2019Q2

REPORT INFORMATION
  Report Type: Spontaneous
  Country: US (occurrence: US)
  Receive Date: 20190510
  Receipt Date: 20190510
  Transmission Date: 20190711
  Serious: Yes (Hospitalization)
  Sender: FDA-Public Use
  Company Number: None

PATIENT
  Age: 76 Year
  Sex: Female

DRUGS (2)
  1. VERSED [Suspect]
     Active Substance: MIDAZOLAM HYDROCHLORIDE
     Route: 042
  2. FENTANYL. [Suspect]
     Active Substance: FENTANYL

REACTIONS (5)
  - Chest discomfort [None]
  - Hypotension [None]
  - Cardioversion [None]
  - Therapy non-responder [None]
  - Supraventricular tachycardia [None]

NARRATIVE: CASE EVENT DATE: 20190318
